FAERS Safety Report 5098963-7 (Version None)
Quarter: 2006Q3

REPORT INFORMATION
  Report Type: 
  Country: None (occurrence: None)
  Receive Date: 20060907
  Receipt Date: 20060905
  Transmission Date: 20061208
  Serious: Yes (Other)
  Sender: FDA-Public Use
  Company Number: GB-BRISTOL-MYERS SQUIBB COMPANY-13499140

PATIENT
  Age: 50 Year
  Sex: Female

DRUGS (4)
  1. PACLITAXEL [Suspect]
     Indication: BREAST CANCER
     Dates: start: 20060623, end: 20060815
  2. PARACETAMOL [Concomitant]
     Dates: start: 20060902
  3. ZOLEDRONATE [Concomitant]
     Dates: start: 20060614
  4. CALCICHEW [Concomitant]
     Dates: start: 20060614

REACTIONS (3)
  - CHEST PAIN [None]
  - DIARRHOEA [None]
  - PERICARDIAL EFFUSION [None]
